FAERS Safety Report 9476900 (Version 1)
Quarter: 2013Q3

REPORT INFORMATION
  Report Type: Spontaneous
  Country: JP (occurrence: JP)
  Receive Date: 20130826
  Receipt Date: 20130826
  Transmission Date: 20140515
  Serious: Yes (Death)
  Sender: FDA-Public Use
  Company Number: JP-GLAXOSMITHKLINE-B0900572A

PATIENT
  Age: 9 Year
  Sex: Female

DRUGS (1)
  1. VOTRIENT [Suspect]
     Indication: PANCREATIC NEUROENDOCRINE TUMOUR
     Dosage: 400MG PER DAY
     Route: 048
     Dates: start: 20130530, end: 201308

REACTIONS (4)
  - Disease progression [Fatal]
  - Insomnia [Recovered/Resolved]
  - C-reactive protein increased [Recovered/Resolved]
  - Blood pressure increased [Recovered/Resolved]
